FAERS Safety Report 5118705-6 (Version None)
Quarter: 2006Q3

REPORT INFORMATION
  Report Type: 
  Country: None (occurrence: None)
  Receive Date: 20060927
  Receipt Date: 20060914
  Transmission Date: 20061208
  Serious: Yes (Hospitalization)
  Sender: FDA-Public Use
  Company Number: 2006113075

PATIENT
  Age: 74 Year
  Sex: Male

DRUGS (6)
  1. ATARAX [Suspect]
     Dosage: 1 DF, ORAL
     Route: 048
     Dates: start: 20060806, end: 20060808
  2. LORATADINE [Suspect]
     Dosage: 10 MG, ORAL
     Route: 048
     Dates: start: 20060806, end: 20060808
  3. TIOTROPIUM BROMIDE (TIOTROPIUM BROMIDE) [Suspect]
     Dosage: 1 DF, ORAL
     Route: 048
     Dates: start: 20060718
  4. ATARAX [Concomitant]
  5. LORATADINE [Concomitant]
  6. TIOTROPIUM BROMIDE (TIOTROPIUM BROMIDE) [Concomitant]

REACTIONS (1)
  - ACUTE GENERALISED EXANTHEMATOUS PUSTULOSIS [None]
